FAERS Safety Report 16950248 (Version 2)
Quarter: 2021Q2

REPORT INFORMATION
  Report Type: Spontaneous
  Country: US (occurrence: US)
  Receive Date: 20191023
  Receipt Date: 20210505
  Transmission Date: 20210716
  Serious: No
  Sender: FDA-Public Use
  Company Number: US-PFIZER INC-2019457296

PATIENT
  Age: 63 Year
  Sex: Female

DRUGS (1)
  1. LYRICA [Suspect]
     Active Substance: PREGABALIN
     Dosage: UNK

REACTIONS (3)
  - Pain [Unknown]
  - Mobility decreased [Unknown]
  - Headache [Unknown]
